FAERS Safety Report 11146427 (Version 1)
Quarter: 2015Q2

REPORT INFORMATION
  Report Type: Spontaneous
  Country: FI (occurrence: FI)
  Receive Date: 20150528
  Receipt Date: 20150528
  Transmission Date: 20150821
  Serious: Yes (Hospitalization, Other)
  Sender: FDA-Public Use
  Company Number: PHHY2015FI019790

PATIENT
  Age: 39 Year
  Sex: Male
  Weight: 110 kg

DRUGS (13)
  1. LEPONEX [Suspect]
     Active Substance: CLOZAPINE
     Dosage: INCREASED DOSE
     Route: 065
  2. LEPONEX [Suspect]
     Active Substance: CLOZAPINE
     Dosage: 450 MG, QD
  3. ZYPREXA [Suspect]
     Active Substance: OLANZAPINE
     Dosage: 20 MG, QD
     Route: 065
     Dates: start: 20150311
  4. DEPRAKINE [Suspect]
     Active Substance: VALPROIC ACID
     Indication: SCHIZOPHRENIA
     Dosage: 1900 MG, QD
     Route: 065
  5. ABSENOR//VALPROATE SODIUM [Suspect]
     Active Substance: VALPROATE SODIUM
     Dosage: 1600 MG, QD
     Route: 065
     Dates: start: 20150311
  6. LEPONEX [Suspect]
     Active Substance: CLOZAPINE
     Dosage: LOWEST DOSE
     Route: 065
     Dates: start: 2004
  7. ZYPREXA [Suspect]
     Active Substance: OLANZAPINE
     Indication: SCHIZOPHRENIA
     Dosage: 30 MG, QD (2 PLUS 1 DF 10 MG TAB)
     Route: 065
     Dates: end: 20150311
  8. ZYPREXA [Suspect]
     Active Substance: OLANZAPINE
     Dosage: 10 MG, QD
     Route: 065
  9. ABSENOR//VALPROATE SODIUM [Suspect]
     Active Substance: VALPROATE SODIUM
     Indication: SCHIZOPHRENIA
     Dosage: 1900 MG, QD
     Route: 065
     Dates: end: 20150311
  10. LEPONEX [Suspect]
     Active Substance: CLOZAPINE
     Dosage: 700 MG, QD
     Route: 065
  11. LEPONEX [Suspect]
     Active Substance: CLOZAPINE
     Dosage: 300 MG, QD
     Route: 065
     Dates: start: 20150311, end: 20150311
  12. LEPONEX [Suspect]
     Active Substance: CLOZAPINE
     Indication: SCHIZOPHRENIA
     Dosage: 400 MG, QD
     Route: 065
  13. EMCONCOR [Concomitant]
     Active Substance: BISOPROLOL FUMARATE
     Indication: HYPERTENSION
     Dosage: 5 MG
     Route: 065

REACTIONS (10)
  - Condition aggravated [Unknown]
  - Weight increased [Recovering/Resolving]
  - Psychotic disorder [Recovered/Resolved]
  - High density lipoprotein decreased [Not Recovered/Not Resolved]
  - Drooling [Not Recovered/Not Resolved]
  - Blood triglycerides increased [Not Recovered/Not Resolved]
  - Speech disorder [Not Recovered/Not Resolved]
  - Muscle twitching [Recovered/Resolved]
  - Mutism [Unknown]
  - Tongue disorder [Unknown]

NARRATIVE: CASE EVENT DATE: 2009
